FAERS Safety Report 24945327 (Version 1)
Quarter: 2025Q1

REPORT INFORMATION
  Report Type: Spontaneous
  Country: GR (occurrence: GR)
  Receive Date: 20250209
  Receipt Date: 20250209
  Transmission Date: 20250408
  Serious: Yes (Other)
  Sender: ALEXION PHARMACEUTICALS
  Company Number: GR-AstraZeneca-CH-00790549AM

PATIENT
  Age: 63 Year

DRUGS (1)
  1. ACALABRUTINIB [Suspect]
     Active Substance: ACALABRUTINIB

REACTIONS (12)
  - Atrial fibrillation [Recovered/Resolved]
  - Chronic inflammatory demyelinating polyradiculoneuropathy [Unknown]
  - Tachycardia [Unknown]
  - Eye pain [Unknown]
  - Dizziness [Unknown]
  - Thyroxine increased [Recovered/Resolved]
  - Headache [Unknown]
  - Vision blurred [Unknown]
  - Dyspnoea [Unknown]
  - Haematocrit decreased [Unknown]
  - Therapeutic response unexpected [Unknown]
  - Dizziness [Unknown]
